FAERS Safety Report 12342428 (Version 2)
Quarter: 2016Q3

REPORT INFORMATION
  Report Type: Report from Study
  Country: FR (occurrence: FR)
  Receive Date: 20160506
  Receipt Date: 20160712
  Transmission Date: 20161109
  Serious: Yes (Hospitalization, Other)
  Sender: FDA-Public Use
  Company Number: FR-CELGENEUS-FRA-2016015610

PATIENT
  Age: 58 Year
  Sex: Female
  Weight: 89.5 kg

DRUGS (18)
  1. CC-10004 [Suspect]
     Active Substance: APREMILAST
     Indication: PSORIASIS
     Route: 048
  2. METFORMINE [Concomitant]
     Active Substance: METFORMIN HYDROCHLORIDE
     Indication: DIABETES MELLITUS
     Route: 048
     Dates: start: 20150422
  3. VASTEN [Concomitant]
     Active Substance: PRAVASTATIN SODIUM
     Indication: PROPHYLAXIS
     Route: 048
     Dates: start: 20140723
  4. ARKOGELULES OMEGA 3 [Concomitant]
     Indication: HYPERLIPIDAEMIA
     Dosage: 75 MILLIGRAM
     Route: 048
     Dates: start: 20150201
  5. VICTOZA [Concomitant]
     Active Substance: LIRAGLUTIDE
     Dosage: 40 MILLIGRAM
     Route: 058
     Dates: start: 201510
  6. EFFERALGAN [Concomitant]
     Active Substance: ACETAMINOPHEN
     Indication: OSTEOARTHRITIS
     Route: 048
     Dates: start: 201104
  7. CC-10004 [Suspect]
     Active Substance: APREMILAST
     Route: 048
     Dates: end: 20160118
  8. CC-10004 [Suspect]
     Active Substance: APREMILAST
     Dosage: 16 CAPSULE
     Route: 048
     Dates: start: 20121105
  9. XEMOSE CERAT [Concomitant]
     Indication: PSORIASIS
     Route: 065
     Dates: start: 201106
  10. ALTEISDUO [Concomitant]
     Active Substance: HYDROCHLOROTHIAZIDE\OLMESARTAN MEDOXOMIL
     Indication: HYPERTENSION
     Dosage: 40/12.5MG
     Route: 048
     Dates: start: 20151220
  11. UVEDOSE [Concomitant]
     Active Substance: CHOLECALCIFEROL
     Indication: VITAMIN D DEFICIENCY
     Route: 048
     Dates: start: 20150408
  12. ADENURIC [Concomitant]
     Active Substance: FEBUXOSTAT
     Indication: PROPHYLAXIS
     Dosage: 3333.3333 IU (INTERNATIONAL UNIT)
     Route: 048
     Dates: start: 201501
  13. CC-10004 [Suspect]
     Active Substance: APREMILAST
     Route: 048
     Dates: start: 20160105
  14. AVLOCARDYL [Concomitant]
     Active Substance: PROPRANOLOL HYDROCHLORIDE
     Indication: HYPERTENSION
     Dosage: 160 MILLIGRAM
     Route: 048
     Dates: start: 2005
  15. VICTOZA [Concomitant]
     Active Substance: LIRAGLUTIDE
     Indication: DIABETES MELLITUS
     Route: 058
     Dates: start: 20150422
  16. METFORMINE [Concomitant]
     Active Substance: METFORMIN HYDROCHLORIDE
     Route: 048
     Dates: start: 201508
  17. CC-10004 [Suspect]
     Active Substance: APREMILAST
     Route: 048
     Dates: end: 20151215
  18. KARDEGIC [Concomitant]
     Active Substance: ASPIRIN LYSINE
     Indication: PROPHYLAXIS
     Route: 048
     Dates: start: 20140723

REACTIONS (2)
  - Endometrial adenocarcinoma [Recovered/Resolved]
  - Abdominal abscess [Recovered/Resolved]

NARRATIVE: CASE EVENT DATE: 20151231
